FAERS Safety Report 17972073 (Version 2)
Quarter: 2020Q3

REPORT INFORMATION
  Report Type: Spontaneous
  Country: JP (occurrence: JP)
  Receive Date: 20200701
  Receipt Date: 20200909
  Transmission Date: 20201103
  Serious: Yes (Other)
  Sender: FDA-Public Use
  Company Number: JP-AMGEN-JPNCT2020103578

PATIENT

DRUGS (3)
  1. IRINOTECAN [Suspect]
     Active Substance: IRINOTECAN
     Indication: COLORECTAL CANCER METASTATIC
     Dosage: 150 MILLIGRAM/SQ. METER, Q2WEEKS
     Route: 050
  2. PANITUMUMAB [Suspect]
     Active Substance: PANITUMUMAB
     Indication: COLORECTAL CANCER METASTATIC
     Dosage: 6 MILLIGRAM/KILOGRAM, Q2WK
     Route: 050
  3. IRINOTECAN [Suspect]
     Active Substance: IRINOTECAN
     Indication: COLORECTAL CANCER METASTATIC
     Dosage: 150 MILLIGRAM/SQ. METER, Q2WK
     Route: 050

REACTIONS (19)
  - Fatigue [Unknown]
  - Hypomagnesaemia [Unknown]
  - Pneumonitis [Unknown]
  - Infusion related reaction [Unknown]
  - Decreased appetite [Unknown]
  - Rash [Unknown]
  - Paronychia [Unknown]
  - Skin toxicity [Unknown]
  - Infection [Unknown]
  - Febrile neutropenia [Unknown]
  - Diarrhoea [Unknown]
  - Dry skin [Unknown]
  - Neutropenia [Unknown]
  - Haematotoxicity [Unknown]
  - Nausea [Unknown]
  - Stomatitis [Unknown]
  - Hypocalcaemia [Unknown]
  - Leukopenia [Unknown]
  - Vomiting [Unknown]
